FAERS Safety Report 24652502 (Version 1)
Quarter: 2024Q4

REPORT INFORMATION
  Report Type: Spontaneous
  Country: US (occurrence: None)
  Receive Date: 20241122
  Receipt Date: 20241122
  Transmission Date: 20250115
  Serious: Yes (Hospitalization)
  Sender: Public
  Company Number: None

PATIENT
  Age: 55 Year
  Sex: Female

DRUGS (1)
  1. HYDROCHLOROTHIAZIDE [Suspect]
     Active Substance: HYDROCHLOROTHIAZIDE
     Indication: Hypertension
     Dosage: 25.00 MG  AM ORAL ?
     Route: 048
     Dates: end: 20240311

REACTIONS (7)
  - Hypokalaemia [None]
  - Hypotension [None]
  - Fall [None]
  - Asthenia [None]
  - Musculoskeletal chest pain [None]
  - Arthralgia [None]
  - Sjogren^s syndrome [None]

NARRATIVE: CASE EVENT DATE: 20240315
